FAERS Safety Report 13263627 (Version 1)
Quarter: 2017Q1

REPORT INFORMATION
  Report Type: Spontaneous
  Country: US (occurrence: US)
  Receive Date: 20170221
  Receipt Date: 20170221
  Transmission Date: 20170428
  Serious: Yes (Other)
  Sender: FDA-Public Use
  Company Number: None

PATIENT
  Age: 51 Year
  Sex: Female
  Weight: 76.5 kg

DRUGS (3)
  1. OXYMORPHONE HCL [Suspect]
     Active Substance: OXYMORPHONE HYDROCHLORIDE
     Indication: SCIATICA
     Dosage: ?          QUANTITY:150 TABLET(S);?
     Route: 048
  2. CLARITIN [Concomitant]
     Active Substance: LORATADINE
  3. ALPRAZOLAM. [Concomitant]
     Active Substance: ALPRAZOLAM

REACTIONS (4)
  - Withdrawal syndrome [None]
  - Product substitution issue [None]
  - Impaired work ability [None]
  - Drug ineffective [None]

NARRATIVE: CASE EVENT DATE: 20170216
